FAERS Safety Report 7796591-3 (Version None)
Quarter: 2011Q4

REPORT INFORMATION
  Report Type: 
  Country: None (occurrence: None)
  Receive Date: 20111005
  Receipt Date: 20110922
  Transmission Date: 20120403
  Serious: Yes (Hospitalization, Other)
  Sender: FDA-Public Use
  Company Number: MX-ELI_LILLY_AND_COMPANY-MX201109002389

PATIENT
  Age: 15 Year
  Sex: Female
  Weight: 68 kg

DRUGS (7)
  1. TAPAZOL [Concomitant]
     Dosage: 25 MG, QD
     Dates: start: 20070101
  2. ZYPREXA [Suspect]
     Indication: BIPOLAR DISORDER
     Dosage: 15 MG, QD
     Route: 048
  3. OMEPRAZOLE [Concomitant]
     Dosage: 1 DF, QD
  4. LAMOTRIGINE [Concomitant]
     Dosage: 100 MG, QD
  5. AMOXICILLIN AND CLAVULANATE POTASSIUM [Concomitant]
     Dosage: 800 MG, BID
  6. CLONAZEPAM [Concomitant]
     Dosage: 6 DF, EACH EVENING
  7. LAMOTRIGINE [Concomitant]
     Dosage: 1 DF, EACH MORNING

REACTIONS (18)
  - HYPERTHYROIDISM [None]
  - ARTHRALGIA [None]
  - ABNORMAL BEHAVIOUR [None]
  - HEADACHE [None]
  - OFF LABEL USE [None]
  - JOINT INJURY [None]
  - CONDITION AGGRAVATED [None]
  - DYSPNOEA [None]
  - STRESS [None]
  - HYPOTHYROIDISM [None]
  - WRONG TECHNIQUE IN DRUG USAGE PROCESS [None]
  - MEMORY IMPAIRMENT [None]
  - DRUG DOSE OMISSION [None]
  - NASAL TURBINATE ABNORMALITY [None]
  - VISION BLURRED [None]
  - HEART RATE INCREASED [None]
  - EYE SWELLING [None]
  - VISUAL IMPAIRMENT [None]
